FAERS Safety Report 26157292 (Version 1)
Quarter: 2025Q4

REPORT INFORMATION
  Report Type: Spontaneous
  Country: JP (occurrence: JP)
  Receive Date: 20251215
  Receipt Date: 20251215
  Transmission Date: 20260118
  Serious: Yes (Hospitalization, Other)
  Sender: JOHNSON AND JOHNSON
  Company Number: JP-JNJFOC-20251217764

PATIENT
  Age: 76 Year
  Sex: Female

DRUGS (1)
  1. HALOMONTH [Suspect]
     Active Substance: HALOPERIDOL DECANOATE
     Indication: Schizophrenia
     Route: 030

REACTIONS (2)
  - Cardiac failure congestive [Unknown]
  - Dysphagia [Unknown]
